FAERS Safety Report 9510279 (Version 1)
Quarter: 2013Q3

REPORT INFORMATION
  Report Type: Spontaneous
  Country: US (occurrence: US)
  Receive Date: 20130909
  Receipt Date: 20130909
  Transmission Date: 20140515
  Serious: No
  Sender: FDA-Public Use
  Company Number: US-BRISTOL-MYERS SQUIBB COMPANY-17476748

PATIENT
  Age: 16 Year
  Sex: Male
  Weight: 73.47 kg

DRUGS (5)
  1. ABILIFY [Suspect]
     Indication: TOURETTE^S DISORDER
     Dosage: 1 DF=10 MG DOSE REDUCED TO 1/2 PILL(10-14 DAYS), PILL(10-14 DAYS), OF A PILL
     Dates: start: 2012
  2. ABILIFY [Suspect]
     Indication: OBSESSIVE-COMPULSIVE DISORDER
     Dosage: 1 DF=10 MG DOSE REDUCED TO 1/2 PILL(10-14 DAYS), PILL(10-14 DAYS), OF A PILL
     Dates: start: 2012
  3. TENEX [Concomitant]
  4. STRATTERA [Concomitant]
  5. LEXAPRO [Concomitant]

REACTIONS (5)
  - Narcolepsy [Unknown]
  - Weight increased [Unknown]
  - Disturbance in attention [Unknown]
  - Speech disorder [Unknown]
  - Tic [Unknown]
